FAERS Safety Report 21391473 (Version 1)
Quarter: 2022Q3

REPORT INFORMATION
  Report Type: Spontaneous
  Country: US (occurrence: None)
  Receive Date: 20220928
  Receipt Date: 20220928
  Transmission Date: 20221026
  Serious: Yes (Other)
  Sender: FDA-Public Use
  Company Number: None

PATIENT
  Age: 56 Year
  Sex: Female

DRUGS (3)
  1. IMVEXXY [Suspect]
     Active Substance: ESTRADIOL
  2. COSMETICS [Suspect]
     Active Substance: COSMETICS
  3. IMVEXXY [Concomitant]
     Active Substance: ESTRADIOL
     Dates: start: 20220914

REACTIONS (1)
  - Application site rash [None]

NARRATIVE: CASE EVENT DATE: 20220914
